FAERS Safety Report 5455122-3 (Version None)
Quarter: 2007Q3

REPORT INFORMATION
  Report Type: 
  Country: None (occurrence: None)
  Receive Date: 20070914
  Receipt Date: 20070831
  Transmission Date: 20080115
  Serious: Yes (Hospitalization)
  Sender: FDA-Public Use
  Company Number: B0486417A

PATIENT

DRUGS (1)
  1. PAROXETINE HCL [Suspect]

REACTIONS (1)
  - ACUTE HEPATIC FAILURE [None]
